FAERS Safety Report 4699285-6 (Version None)
Quarter: 2005Q2

REPORT INFORMATION
  Report Type: 
  Country: None (occurrence: None)
  Receive Date: 20050624
  Receipt Date: 20050603
  Transmission Date: 20051028
  Serious: Yes (Other)
  Sender: FDA-Public Use
  Company Number: US-GLAXOSMITHKLINE-A0561139A

PATIENT
  Age: 59 Year
  Sex: Female
  Weight: 70.9 kg

DRUGS (10)
  1. ADVAIR [Suspect]
     Indication: ASTHMA
     Dosage: 1PUFF TWICE PER DAY
     Route: 055
     Dates: start: 20020101
  2. TEGRETOL [Concomitant]
     Indication: EPILEPSY
     Dosage: 400MG TWICE PER DAY
     Route: 048
     Dates: start: 20040101
  3. ALBUTEROL [Concomitant]
     Indication: ASTHMA
     Dosage: 2PUFF AS REQUIRED
     Route: 055
     Dates: start: 19950101
  4. NEXIUM [Concomitant]
     Indication: HIATUS HERNIA
     Dosage: 40MG TWICE PER DAY
     Route: 048
  5. COGENTIN [Concomitant]
     Indication: DEPRESSION
     Dosage: 1MG TWICE PER DAY
     Route: 048
     Dates: start: 20040901
  6. LITHIUM [Concomitant]
     Indication: DEPRESSION
     Dosage: 300MG TWICE PER DAY
     Route: 048
     Dates: start: 20040901
  7. HALDOL [Concomitant]
     Indication: DEPRESSION
     Dosage: 5MG PER DAY
     Route: 048
     Dates: start: 20040901
  8. LIPITOR [Concomitant]
     Indication: BLOOD CHOLESTEROL INCREASED
     Dosage: 10MG PER DAY
     Route: 048
     Dates: start: 20040101
  9. ALLEGRA [Concomitant]
     Indication: MULTIPLE ALLERGIES
     Route: 048
     Dates: start: 20040101
  10. FLONASE [Concomitant]
     Indication: MULTIPLE ALLERGIES
     Dosage: 2SPR PER DAY
     Route: 045
     Dates: start: 20040101

REACTIONS (1)
  - CONVULSION [None]
